FAERS Safety Report 5731423-6 (Version None)
Quarter: 2008Q2

REPORT INFORMATION
  Report Type: 
  Country: None (occurrence: None)
  Receive Date: 20080508
  Receipt Date: 20080430
  Transmission Date: 20081010
  Serious: Yes (Life-Threatening, Hospitalization, Other)
  Sender: FDA-Public Use
  Company Number: CZ-JNJFOC-20080500605

PATIENT
  Sex: Male

DRUGS (2)
  1. REMICADE [Suspect]
     Indication: RHEUMATOID ARTHRITIS
     Route: 042
  2. METHOTREXATE [Concomitant]
     Route: 048

REACTIONS (5)
  - HEPATIC LESION [None]
  - HEPATORENAL FAILURE [None]
  - HEPATOSPLENOMEGALY [None]
  - JAUNDICE [None]
  - SEPSIS [None]
